FAERS Safety Report 4609823-7 (Version None)
Quarter: 2005Q1

REPORT INFORMATION
  Report Type: 
  Country: None (occurrence: None)
  Receive Date: 20050316
  Receipt Date: 20050218
  Transmission Date: 20050727
  Serious: No
  Sender: FDA-Public Use
  Company Number: 200510654FR

PATIENT
  Sex: Female

DRUGS (3)
  1. KETEK [Suspect]
     Indication: BRONCHITIS
     Route: 048
  2. SOLUPRED [Concomitant]
  3. BETA BLOCKING AGENTS [Concomitant]

REACTIONS (3)
  - ACCOMMODATION DISORDER [None]
  - BLINDNESS [None]
  - DIPLOPIA [None]
